FAERS Safety Report 15134937 (Version 1)
Quarter: 2018Q3

REPORT INFORMATION
  Report Type: Report from Study
  Country: DE (occurrence: DE)
  Receive Date: 20180712
  Receipt Date: 20180712
  Transmission Date: 20181010
  Serious: Yes (Hospitalization)
  Sender: FDA-Public Use
  Company Number: DE-ROCHE-2151323

PATIENT
  Age: 31 Year
  Sex: Male

DRUGS (8)
  1. VENETOCLAX. [Suspect]
     Active Substance: VENETOCLAX
     Route: 048
     Dates: start: 20180611
  2. VENETOCLAX. [Suspect]
     Active Substance: VENETOCLAX
     Route: 048
     Dates: start: 20180528
  3. VENETOCLAX. [Suspect]
     Active Substance: VENETOCLAX
     Route: 048
     Dates: start: 20180604
  4. OBINUTUZUMAB. [Suspect]
     Active Substance: OBINUTUZUMAB
     Indication: CHRONIC LYMPHOCYTIC LEUKAEMIA
     Dosage: LAST DOSE ON 16/MAR/2018, PRIOR TO SERIOUS ADVERSE EVENT.?27/JUN/2018, RECEIVED 6TH DOSE OF OBINUTUZ
     Route: 042
     Dates: start: 20171115
  5. IBRUTINIB [Suspect]
     Active Substance: IBRUTINIB
     Indication: CHRONIC LYMPHOCYTIC LEUKAEMIA
     Dosage: LAST DOSE ON 06/APR/2018?CYCLES 1?12: 420 MG, D1?28, Q28D?CYCLES 13?36: 420 MG, D1?28, Q28D
     Route: 048
     Dates: start: 20171115
  6. RANITIDIN [Concomitant]
     Active Substance: RANITIDINE HYDROCHLORIDE
     Route: 065
     Dates: start: 20171115
  7. COTRIMAZOL [Concomitant]
     Route: 065
     Dates: start: 20171117
  8. VENETOCLAX. [Suspect]
     Active Substance: VENETOCLAX
     Indication: CHRONIC LYMPHOCYTIC LEUKAEMIA
     Dosage: LAST DOSE ON 22/JUN/2018?CYCLE 1: 20 MG (2 TABL. AT 10 MG), D22?28, Q28D?CYCLE 2: 50 MG (1 TABL. AT
     Route: 048
     Dates: start: 20171206

REACTIONS (1)
  - Meningitis [Not Recovered/Not Resolved]

NARRATIVE: CASE EVENT DATE: 20180622
